FAERS Safety Report 7328221-9 (Version None)
Quarter: 2011Q1

REPORT INFORMATION
  Report Type: 
  Country: None (occurrence: None)
  Receive Date: 20110224
  Receipt Date: 20110224
  Transmission Date: 20110831
  Serious: Yes (Other)
  Sender: FDA-Public Use
  Company Number: None

PATIENT
  Sex: Female

DRUGS (1)
  1. VENLAFAXINE [Suspect]
     Indication: DEPRESSION
     Dosage: PO 2 CAPSULES, DAILY
     Route: 048

REACTIONS (4)
  - CRYING [None]
  - PRODUCT SUBSTITUTION ISSUE [None]
  - NAUSEA [None]
  - ANXIETY [None]
